FAERS Safety Report 7494876-1 (Version None)
Quarter: 2011Q2

REPORT INFORMATION
  Report Type: 
  Country: None (occurrence: None)
  Receive Date: 20110520
  Receipt Date: 20110504
  Transmission Date: 20111010
  Serious: No
  Sender: FDA-Public Use
  Company Number: US-B.I. PHARMACEUTICALS,INC./RIDGEFIELD-2011-BP-03796BP

PATIENT
  Age: 79 Year
  Sex: Female

DRUGS (9)
  1. LOVAZA [Concomitant]
     Indication: SUPPLEMENTATION THERAPY
  2. DIGOXIN [Concomitant]
     Indication: HYPERTENSION
     Dosage: 25 MG
  3. SIMVASTATIN [Concomitant]
     Dosage: 20 MG
  4. CALCIUM MAG [Concomitant]
     Indication: SUPPLEMENTATION THERAPY
  5. PRADAXA [Suspect]
     Indication: ATRIAL FIBRILLATION
     Dosage: 300 MG
     Route: 048
     Dates: start: 20110202
  6. LISINOPRIL [Concomitant]
     Indication: HYPERTENSION
     Dosage: 10 MG
  7. ATENOLOL [Concomitant]
     Indication: HYPERTENSION
     Dosage: 25 MG
  8. MULTI-VITAMIN [Concomitant]
     Indication: SUPPLEMENTATION THERAPY
  9. CO Q 10 [Concomitant]
     Indication: SUPPLEMENTATION THERAPY

REACTIONS (2)
  - DYSPEPSIA [None]
  - OROPHARYNGEAL PAIN [None]
